FAERS Safety Report 8098755-0 (Version None)
Quarter: 2012Q1

REPORT INFORMATION
  Report Type: 
  Country: None (occurrence: None)
  Receive Date: 20120131
  Receipt Date: 20120123
  Transmission Date: 20120608
  Serious: Yes (Other)
  Sender: FDA-Public Use
  Company Number: US-ACTELION-A-US2011-58246

PATIENT

DRUGS (2)
  1. REVATIO [Concomitant]
  2. TRACLEER [Suspect]
     Indication: PULMONARY ARTERIAL HYPERTENSION
     Dosage: UNK
     Route: 048
     Dates: start: 20060720, end: 20111115

REACTIONS (4)
  - CARDIAC PACEMAKER INSERTION [None]
  - BRADYCARDIA [None]
  - TACHYCARDIA [None]
  - HEART RATE INCREASED [None]
